FAERS Safety Report 11939857 (Version 1)
Quarter: 2016Q1

REPORT INFORMATION
  Report Type: Spontaneous
  Country: US (occurrence: US)
  Receive Date: 20160122
  Receipt Date: 20160122
  Transmission Date: 20160526
  Serious: No
  Sender: FDA-Public Use
  Company Number: US-PERRIGO-15US006071

PATIENT
  Age: 58 Year
  Sex: Female
  Weight: 72.56 kg

DRUGS (2)
  1. CLINDAMYCIN PHOSPHATE. [Suspect]
     Active Substance: CLINDAMYCIN PHOSPHATE
     Indication: SKIN LESION
     Dosage: ONE SMALL APPLICATION, BID
     Route: 061
     Dates: start: 2006, end: 201405
  2. CLINDAMYCIN PHOSPHATE. [Suspect]
     Active Substance: CLINDAMYCIN PHOSPHATE
     Indication: PROPHYLAXIS
     Dosage: ONE SMALL APPLICATION, BID
     Route: 061
     Dates: start: 201405

REACTIONS (2)
  - Drug ineffective for unapproved indication [Unknown]
  - Therapeutic response unexpected [Unknown]

NARRATIVE: CASE EVENT DATE: 2006
